FAERS Safety Report 8913389 (Version 1)
Quarter: 2012Q4

REPORT INFORMATION
  Report Type: Report from Study
  Country: US (occurrence: US)
  Receive Date: 20121116
  Receipt Date: 20121116
  Transmission Date: 20130627
  Serious: Yes (Disabling, Other)
  Sender: FDA-Public Use
  Company Number: US-PFIZER INC-2011157669

PATIENT
  Age: 48 Year
  Sex: Male
  Weight: 87.08 kg

DRUGS (18)
  1. LIPITOR [Suspect]
     Indication: HIGH CHOLESTEROL
     Dosage: 10 mg, UNK
     Route: 048
     Dates: start: 201007
  2. VIAGRA [Suspect]
     Indication: BLOOD PRESSURE HIGH
     Dosage: UNK
     Route: 048
     Dates: start: 201007
  3. VIAGRA [Suspect]
     Indication: DIABETES
  4. METFORMIN HCL [Suspect]
     Indication: TYPE II DIABETES MELLITUS
     Dosage: 500 mg two tablets in the morning and one at night
  5. OXYCODONE HYDROCHLORIDE [Suspect]
     Dosage: UNK
     Route: 048
  6. LANTUS [Suspect]
     Indication: TYPE II DIABETES MELLITUS
     Dosage: UNK,daily in the afternoon
  7. GLIMEPIRIDE [Suspect]
     Indication: TYPE II DIABETES MELLITUS
     Dosage: 2 mg, UNK
     Route: 048
  8. AVANDIA [Suspect]
     Indication: TYPE II DIABETES MELLITUS
     Dosage: UNK
     Route: 048
  9. TRAZODONE [Concomitant]
     Indication: SLEEP PROBLEM
     Dosage: 100 mg, daily
     Route: 048
  10. AMITRIPTYLINE [Concomitant]
     Dosage: 100 mg, 2x/day
  11. CLONAZEPAM [Concomitant]
     Dosage: 1 mg, daily
  12. IBUPROFEN [Concomitant]
     Indication: INFLAMMATION
     Dosage: 800 mg, 2x/day
     Route: 048
  13. IBUPROFEN [Concomitant]
     Indication: BACK PAIN
  14. SIMVASTATIN [Concomitant]
     Indication: HIGH CHOLESTEROL
     Dosage: 40 mg, daily
  15. LITHIUM CARBONATE [Concomitant]
     Dosage: 300 mg, UNK
  16. ZOLPIDEM TARTRATE [Concomitant]
     Indication: SLEEP PROBLEM
     Dosage: 10 mg, UNK
  17. SOMA [Concomitant]
     Dosage: 350 mg, UNK
  18. CIALIS [Concomitant]
     Dosage: UNK

REACTIONS (13)
  - Loss of consciousness [Unknown]
  - Blood glucose decreased [Unknown]
  - Blood glucose increased [Unknown]
  - Hypertension [Unknown]
  - Neuropathy peripheral [Unknown]
  - Movement disorder [Unknown]
  - Localised infection [Unknown]
  - Blood glucose fluctuation [Unknown]
  - Musculoskeletal pain [Unknown]
  - Facial pain [Unknown]
  - Pain in extremity [Unknown]
  - Drug ineffective [Unknown]
  - Drug tolerance [Unknown]
